FAERS Safety Report 5711932-6 (Version None)
Quarter: 2008Q2

REPORT INFORMATION
  Report Type: 
  Country: None (occurrence: None)
  Receive Date: 20080421
  Receipt Date: 20080409
  Transmission Date: 20081010
  Serious: Yes (Death, Other)
  Sender: FDA-Public Use
  Company Number: US-ELI_LILLY_AND_COMPANY-US200801002944

PATIENT
  Age: 61 Year
  Sex: Female
  Weight: 72.562 kg

DRUGS (9)
  1. CYMBALTA [Suspect]
     Indication: DEPRESSION
     Dosage: 30 MG, 2/D
     Dates: start: 20050109
  2. CYMBALTA [Interacting]
     Dosage: 90 MG, UNK
  3. CYMBALTA [Interacting]
     Dosage: 60 MG, 2/D
     Dates: start: 20061128
  4. LUNESTA [Interacting]
     Indication: SLEEP DISORDER
     Dosage: 3 MG, EACH EVENING
     Route: 048
     Dates: start: 20061204
  5. XANAX [Interacting]
     Indication: ANXIETY
     Dosage: 0.5 MG, 2/D
  6. EFFEXOR XR [Concomitant]
     Dosage: 1 D/F, UNK
     Dates: end: 20060317
  7. EFFEXOR XR [Concomitant]
     Dosage: 150 MG, DAILY (1/D)
     Dates: start: 20060317
  8. CLONAZEPAM [Concomitant]
     Indication: ANXIETY
     Dosage: 1 D/F, 3/D
  9. MYLANTA [Concomitant]

REACTIONS (7)
  - ANOREXIA [None]
  - ANXIETY [None]
  - COMPLETED SUICIDE [None]
  - DRUG INEFFECTIVE [None]
  - DRUG INTERACTION [None]
  - FEELING ABNORMAL [None]
  - JUDGEMENT IMPAIRED [None]
